FAERS Safety Report 8052550-7 (Version None)
Quarter: 2012Q1

REPORT INFORMATION
  Report Type: 
  Country: None (occurrence: None)
  Receive Date: 20120112
  Receipt Date: 20120104
  Transmission Date: 20120608
  Serious: Yes (Hospitalization, Disabling, Other)
  Sender: FDA-Public Use
  Company Number: 2010MA005194

PATIENT
  Sex: Female
  Weight: 81.0124 kg

DRUGS (50)
  1. LOMOTIL [Concomitant]
  2. TOPICORT [Concomitant]
  3. ZOLOFT [Concomitant]
  4. HYDROCORTISONE [Concomitant]
  5. ARMODAFINIL [Concomitant]
  6. ZITHROMAX [Concomitant]
  7. METOCLOPRAMIDE [Suspect]
     Indication: ABDOMINAL PAIN
     Dosage: 10 MG;UNK;PO
     Route: 048
     Dates: start: 20061020, end: 20070928
  8. METOCLOPRAMIDE [Suspect]
     Indication: GASTROINTESTINAL DISORDER
     Dosage: 10 MG;UNK;PO
     Route: 048
     Dates: start: 20061020, end: 20070928
  9. ELOCON [Concomitant]
  10. AVANDARYL [Concomitant]
  11. COGENTIN [Concomitant]
  12. MELOXICAM [Concomitant]
  13. HUMULIN 70/30 [Concomitant]
  14. TEMAZEPAM [Concomitant]
  15. LOVASTATIN [Concomitant]
  16. VITAMIN B COMPLEX CAP [Concomitant]
  17. FLAGYL [Concomitant]
  18. METROGEL [Concomitant]
  19. PREMARIN [Concomitant]
  20. TERAZOL 1 [Concomitant]
  21. ACTOS [Concomitant]
  22. JANUVIA [Concomitant]
  23. CYCLOBENZAPRINE [Concomitant]
  24. PREDNISONE [Concomitant]
  25. FORTEO [Concomitant]
  26. INSULIN [Concomitant]
  27. PEPCID [Concomitant]
  28. PROVIGIL [Concomitant]
  29. TETRACYCLINE [Concomitant]
  30. APAP TAB [Concomitant]
  31. ATENOLOL [Concomitant]
  32. DEPO-MEDROL [Concomitant]
  33. PHENERGAN [Concomitant]
  34. STEROIDS [Concomitant]
  35. PRILOSEC OTC [Concomitant]
  36. LANTUS [Concomitant]
  37. ALBUTEROL [Concomitant]
  38. NYSTATIN [Concomitant]
  39. BENADRYL [Concomitant]
  40. ZETIA [Concomitant]
  41. RECLAST [Concomitant]
  42. GYNAZOLE [Concomitant]
  43. MYCOLOG [Concomitant]
  44. LASIX [Concomitant]
  45. AVANDIA [Concomitant]
  46. CELEXA [Concomitant]
  47. TRAMADOL HCL [Concomitant]
  48. LYRICA [Concomitant]
  49. DICLOFENAC [Concomitant]
  50. CIPROFLOXACIN [Concomitant]

REACTIONS (68)
  - ENTEROCOCCUS TEST POSITIVE [None]
  - BLOOD CULTURE POSITIVE [None]
  - TORTICOLLIS [None]
  - PARKINSON'S DISEASE [None]
  - OSTEOPENIA [None]
  - MULTIPLE INJURIES [None]
  - NERVOUS SYSTEM DISORDER [None]
  - EXTRAPYRAMIDAL DISORDER [None]
  - MENTAL DISORDER [None]
  - SOMNOLENCE [None]
  - TRISMUS [None]
  - DENTAL CARIES [None]
  - DIZZINESS [None]
  - GASTRITIS [None]
  - GINGIVAL PAIN [None]
  - HEADACHE [None]
  - GASTROENTERITIS [None]
  - VITAMIN B12 DECREASED [None]
  - LOW DENSITY LIPOPROTEIN INCREASED [None]
  - STAPHYLOCOCCUS TEST POSITIVE [None]
  - MEAN CELL VOLUME INCREASED [None]
  - FIBROMYALGIA [None]
  - ABDOMINAL PAIN [None]
  - ECONOMIC PROBLEM [None]
  - HYPOGLYCAEMIA [None]
  - ARTHRALGIA [None]
  - MYOPATHY [None]
  - FAMILY STRESS [None]
  - OEDEMA PERIPHERAL [None]
  - BLOOD COPPER DECREASED [None]
  - AORTIC ARTERIOSCLEROSIS [None]
  - DYSKINESIA [None]
  - TARDIVE DYSKINESIA [None]
  - PAIN [None]
  - INCORRECT DRUG ADMINISTRATION DURATION [None]
  - HYPOTHYROIDISM [None]
  - RASH [None]
  - EPSTEIN-BARR VIRUS INFECTION [None]
  - CULTURE URINE POSITIVE [None]
  - HYPERKINESIA [None]
  - RETCHING [None]
  - IDIOPATHIC THROMBOCYTOPENIC PURPURA [None]
  - SALIVARY GLAND ENLARGEMENT [None]
  - DIARRHOEA [None]
  - SLEEP APNOEA SYNDROME [None]
  - BLOOD GLUCOSE INCREASED [None]
  - RED BLOOD CELL SEDIMENTATION RATE INCREASED [None]
  - DRUG SCREEN POSITIVE [None]
  - CEREBROVASCULAR ACCIDENT [None]
  - AKATHISIA [None]
  - OSTEOPOROSIS [None]
  - JOINT CREPITATION [None]
  - PAIN IN EXTREMITY [None]
  - ABDOMINAL PAIN UPPER [None]
  - DUODENAL ULCER [None]
  - GASTROOESOPHAGEAL REFLUX DISEASE [None]
  - BITE [None]
  - OSTEOARTHRITIS [None]
  - GASTROINTESTINAL DISORDER [None]
  - ACTIVITIES OF DAILY LIVING IMPAIRED [None]
  - DEFORMITY [None]
  - ASTHENIA [None]
  - URINARY TRACT INFECTION [None]
  - POLYMYALGIA RHEUMATICA [None]
  - DYSTONIA [None]
  - ATAXIA [None]
  - SPINAL COMPRESSION FRACTURE [None]
  - BRONCHITIS [None]
